FAERS Safety Report 15732500 (Version 1)
Quarter: 2018Q4

REPORT INFORMATION
  Report Type: Spontaneous
  Country: US (occurrence: US)
  Receive Date: 20181217
  Receipt Date: 20181217
  Transmission Date: 20190205
  Serious: No
  Sender: FDA-Public Use
  Company Number: US-VIFOR (INTERNATIONAL) INC.-VIT-2018-10318

PATIENT
  Age: 79 Year
  Sex: Female

DRUGS (11)
  1. VELTASSA [Suspect]
     Active Substance: PATIROMER
     Dates: start: 201703
  2. AMLODIPINE BESYLATE. [Concomitant]
     Active Substance: AMLODIPINE BESYLATE
  3. NASONEX [Concomitant]
     Active Substance: MOMETASONE FUROATE
  4. SIMVASTATIN. [Concomitant]
     Active Substance: SIMVASTATIN
  5. CALTRATE [Concomitant]
     Active Substance: CALCIUM CARBONATE
  6. IRON [Concomitant]
     Active Substance: IRON
  7. VELTASSA [Suspect]
     Active Substance: PATIROMER
     Dates: start: 201703
  8. METOPROLOL TARTRATE. [Concomitant]
     Active Substance: METOPROLOL TARTRATE
  9. FUROSEMIDE. [Concomitant]
     Active Substance: FUROSEMIDE
  10. VELTASSA [Suspect]
     Active Substance: PATIROMER
     Indication: HYPERKALAEMIA
     Route: 048
     Dates: start: 20160806
  11. FISH OIL [Concomitant]
     Active Substance: FISH OIL

REACTIONS (1)
  - Off label use [Unknown]

NARRATIVE: CASE EVENT DATE: 201703
